FAERS Safety Report 18453369 (Version 1)
Quarter: 2020Q4

REPORT INFORMATION
  Report Type: Report from Study
  Country: IN (occurrence: IN)
  Receive Date: 20201102
  Receipt Date: 20201102
  Transmission Date: 20210114
  Serious: Yes (Death, Hospitalization)
  Sender: FDA-Public Use
  Company Number: NVSC2020IN293207

PATIENT
  Age: 44 Year
  Sex: Male

DRUGS (1)
  1. TACSANT [Suspect]
     Active Substance: TACROLIMUS
     Indication: RENAL TRANSPLANT
     Dosage: 0.5 MG, BID (STOP DATE: 28 OCT 2020)
     Route: 065
     Dates: start: 20201023

REACTIONS (4)
  - Pyrexia [Unknown]
  - Death [Fatal]
  - Dyspnoea [Unknown]
  - SARS-CoV-2 test positive [Unknown]

NARRATIVE: CASE EVENT DATE: 20201028
